FAERS Safety Report 24610557 (Version 1)
Quarter: 2024Q4

REPORT INFORMATION
  Report Type: Spontaneous
  Country: US (occurrence: US)
  Receive Date: 20241112
  Receipt Date: 20241112
  Transmission Date: 20250115
  Serious: Yes (Hospitalization)
  Sender: FRESENIUS MEDICAL CARE
  Company Number: US-FMCRTG-FMC-2410-001355

PATIENT
  Age: 60 Year
  Sex: Female
  Weight: 98.0 kg

DRUGS (4)
  1. DELFLEX WITH DEXTROSE 1.5% LOW MAGNESIUM LOW CALCIUM [Suspect]
     Active Substance: CALCIUM CHLORIDE\DEXTROSE\MAGNESIUM CHLORIDE\SODIUM CHLORIDE\SODIUM LACTATE
     Indication: End stage renal disease
     Dosage: EXCHANGES 6, FILL VOLUME 2600 ML, AVERAGE DWELL TIME 1.5 HOURS, LAST FILL VOLUME 2000 ML (ICODEXTRIN
     Route: 033
  2. DELFLEX WITH DEXTROSE 2.5% LOW MAGNESIUM LOW CALCIUM [Suspect]
     Active Substance: CALCIUM CHLORIDE\DEXTROSE\MAGNESIUM CHLORIDE\SODIUM CHLORIDE\SODIUM LACTATE
     Indication: End stage renal disease
     Dosage: EXCHANGES 6, FILL VOLUME 2600 ML, AVERAGE DWELL TIME 1.5 HOURS, LAST FILL VOLUME 2000 ML (ICODEXTRIN
     Route: 033
  3. DELFLEX WITH DEXTROSE 4.25% LOW MAGNESIUM LOW CALCIUM [Suspect]
     Active Substance: CALCIUM CHLORIDE\DEXTROSE\MAGNESIUM CHLORIDE\SODIUM CHLORIDE\SODIUM LACTATE
     Indication: End stage renal disease
     Dosage: EXCHANGES 6, FILL VOLUME 2600 ML, AVERAGE DWELL TIME 1.5 HOURS, LAST FILL VOLUME 2000 ML (ICODEXTRIN
     Route: 033
  4. ICODEXTRIN [Suspect]
     Active Substance: ICODEXTRIN
     Indication: End stage renal disease
     Dosage: EXCHANGES = 6, FILL VOLUME = 2600 ML, AVERAGE DWELL TIME = 1.5 HOURS, LAST FILL VOLUME = 2000 ML (IC

REACTIONS (1)
  - Peritonitis [Recovered/Resolved]
